FAERS Safety Report 22212282 (Version 1)
Quarter: 2023Q2

REPORT INFORMATION
  Report Type: Spontaneous
  Country: CH (occurrence: CH)
  Receive Date: 20230414
  Receipt Date: 20230414
  Transmission Date: 20230722
  Serious: Yes (Hospitalization)
  Sender: FDA-Public Use
  Company Number: None

PATIENT
  Age: 64 Year
  Sex: Female

DRUGS (17)
  1. IOBITRIDOL [Suspect]
     Active Substance: IOBITRIDOL
     Indication: Computerised tomogram
     Dates: start: 20230314, end: 20230314
  2. DOTAREM [Suspect]
     Active Substance: GADOTERATE MEGLUMINE
     Indication: Product used for unknown indication
     Dates: start: 20230304, end: 20230304
  3. KEYTRUDA [Suspect]
     Active Substance: PEMBROLIZUMAB
     Indication: Lung adenocarcinoma
     Dosage: STRENGTH 100 MG
     Dates: start: 20230310, end: 20230310
  4. VIMOVO [Suspect]
     Active Substance: ESOMEPRAZOLE MAGNESIUM\NAPROXEN
     Indication: Product used for unknown indication
     Dates: start: 20230310
  5. PIPERACILLIN AND TAZOBACTAM [Suspect]
     Active Substance: PIPERACILLIN SODIUM\TAZOBACTAM SODIUM
     Indication: Product used for unknown indication
     Route: 042
     Dates: start: 20230314, end: 20230317
  6. AMOXICILLIN\CLAVULANATE POTASSIUM [Suspect]
     Active Substance: AMOXICILLIN\CLAVULANATE POTASSIUM
     Indication: Product used for unknown indication
     Dates: start: 20230314, end: 20230314
  7. IBUPROFEN [Suspect]
     Active Substance: IBUPROFEN
     Indication: Product used for unknown indication
     Dates: start: 20230314, end: 20230317
  8. ASPIRIN [Suspect]
     Active Substance: ASPIRIN
     Indication: Lung adenocarcinoma
     Dosage: STRENGTH 100 MG
     Dates: start: 20230304, end: 20230304
  9. ASPIRIN [Suspect]
     Active Substance: ASPIRIN
     Dosage: STRENGTH 100 MG
     Dates: start: 20230305, end: 20230306
  10. ASPIRIN [Suspect]
     Active Substance: ASPIRIN
     Dosage: STRENGTH 100 MG
     Dates: start: 20230313, end: 20230317
  11. Amine [Concomitant]
     Indication: Product used for unknown indication
     Route: 042
     Dates: start: 20230314, end: 20230319
  12. ACETAMINOPHEN [Concomitant]
     Active Substance: ACETAMINOPHEN
     Indication: Product used for unknown indication
     Dates: start: 20230313, end: 20230317
  13. NEXIUM [Concomitant]
     Active Substance: ESOMEPRAZOLE MAGNESIUM
     Indication: Product used for unknown indication
     Dosage: STRENGTH 10 MG
     Dates: start: 20230314, end: 20230317
  14. OXYCODONE HYDROCHLORIDE [Concomitant]
     Active Substance: OXYCODONE HYDROCHLORIDE
     Indication: Product used for unknown indication
     Dosage: STRENGTH 200 MG
     Dates: start: 20230314, end: 20230317
  15. AMINO ACIDS\DEXTROSE\ELECTROLYTES NOS\SOYBEAN OIL [Concomitant]
     Active Substance: AMINO ACIDS\DEXTROSE\ELECTROLYTES NOS\SOYBEAN OIL
     Indication: Product used for unknown indication
     Dates: start: 20230314, end: 20230317
  16. ENOXAPARIN SODIUM [Concomitant]
     Active Substance: ENOXAPARIN SODIUM
     Indication: Product used for unknown indication
     Dates: start: 20230313, end: 20230317
  17. Temesta [Concomitant]
     Indication: Product used for unknown indication
     Dates: start: 20230314

REACTIONS (2)
  - Rash maculo-papular [Recovering/Resolving]
  - Drug reaction with eosinophilia and systemic symptoms [Recovering/Resolving]

NARRATIVE: CASE EVENT DATE: 20230317
